FAERS Safety Report 14940239 (Version 1)
Quarter: 2018Q2

REPORT INFORMATION
  Report Type: Spontaneous
  Country: MX (occurrence: MX)
  Receive Date: 20180525
  Receipt Date: 20180525
  Transmission Date: 20180711
  Serious: Yes (Hospitalization, Other)
  Sender: FDA-Public Use
  Company Number: MX-ABBVIE-18K-107-2367657-00

PATIENT
  Age: 67 Year
  Sex: Female

DRUGS (5)
  1. VENCLEXTA [Suspect]
     Active Substance: VENETOCLAX
     Indication: ACUTE BIPHENOTYPIC LEUKAEMIA
     Route: 048
     Dates: start: 20180518, end: 201805
  2. VENCLEXTA [Suspect]
     Active Substance: VENETOCLAX
     Route: 048
     Dates: start: 20180522, end: 20180522
  3. CYTARABINE. [Concomitant]
     Active Substance: CYTARABINE
     Indication: PRODUCT USED FOR UNKNOWN INDICATION
     Dosage: SMALL DOSES
     Dates: start: 20180518
  4. PREDNISONE. [Concomitant]
     Active Substance: PREDNISONE
     Indication: PRODUCT USED FOR UNKNOWN INDICATION
     Route: 048
  5. VINCRISTIN [Concomitant]
     Active Substance: VINCRISTINE
     Indication: PRODUCT USED FOR UNKNOWN INDICATION
     Route: 042

REACTIONS (8)
  - Blood creatinine increased [Recovering/Resolving]
  - Tumour lysis syndrome [Recovered/Resolved]
  - Thrombocytopenia [Recovering/Resolving]
  - Off label use [Unknown]
  - Hypocalcaemia [Recovering/Resolving]
  - Hypophosphataemia [Unknown]
  - Polyuria [Recovered/Resolved]
  - Neutropenia [Recovering/Resolving]

NARRATIVE: CASE EVENT DATE: 201805
